FAERS Safety Report 21376958 (Version 1)
Quarter: 2022Q3

REPORT INFORMATION
  Report Type: Spontaneous
  Country: DE (occurrence: DE)
  Receive Date: 20220926
  Receipt Date: 20220926
  Transmission Date: 20221027
  Serious: Yes (Hospitalization)
  Sender: FDA-Public Use
  Company Number: None

PATIENT
  Age: 78 Year
  Sex: Male
  Weight: 84 kg

DRUGS (6)
  1. METHOTREXATE SODIUM [Suspect]
     Active Substance: METHOTREXATE SODIUM
     Dosage: 15 MG, SUNDAYS ONE
     Route: 048
  2. TORSEMIDE [Suspect]
     Active Substance: TORSEMIDE
     Dosage: 200 MG, 0.25-0.25-0-0
     Route: 048
  3. AMLODIPINE BESYLATE\OLMESARTAN MEDOXOMIL [Suspect]
     Active Substance: AMLODIPINE BESYLATE\OLMESARTAN MEDOXOMIL
     Dosage: 10/40 MG, 1-0-0-0
     Route: 048
  4. ALLOPURINOL [Suspect]
     Active Substance: ALLOPURINOL
     Dosage: 300 MG, 0.5-0-0-0
     Route: 048
  5. FOLIC ACID [Concomitant]
     Active Substance: FOLIC ACID
     Dosage: 5 MG, MONDAYS ONE
     Route: 048
  6. CHOLECALCIFEROL [Concomitant]
     Active Substance: CHOLECALCIFEROL
     Dosage: 20000 IU, WEDNESDAYS ONE
     Route: 048

REACTIONS (9)
  - Erythema [Unknown]
  - Osteomyelitis [Unknown]
  - Renal impairment [Unknown]
  - Pain [Unknown]
  - Pain in extremity [Unknown]
  - Dysuria [Unknown]
  - Limb injury [Unknown]
  - Peripheral arterial occlusive disease [Unknown]
  - Acute kidney injury [Unknown]
